FAERS Safety Report 21628417 (Version 1)
Quarter: 2022Q4

REPORT INFORMATION
  Report Type: Spontaneous
  Country: US (occurrence: None)
  Receive Date: 20221121
  Receipt Date: 20221121
  Transmission Date: 20230113
  Serious: No
  Sender: FDA-Public Use
  Company Number: None

PATIENT
  Age: 68 Year
  Sex: Female
  Weight: 100.9 kg

DRUGS (17)
  1. CLOPIDOGREL BISULFATE [Suspect]
     Active Substance: CLOPIDOGREL BISULFATE
     Dosage: FREQUENCY : DAILY;?
     Route: 048
     Dates: start: 20211201, end: 20221117
  2. DOXYCYCLINE HYCLATE [Concomitant]
     Active Substance: DOXYCYCLINE HYCLATE
     Dates: start: 20220527
  3. METOPROLOL SUCCINATE [Concomitant]
     Active Substance: METOPROLOL SUCCINATE
     Dates: start: 20220504
  4. ROSUVASTATIN [Concomitant]
     Active Substance: ROSUVASTATIN
     Dates: start: 20220504
  5. COENZYME Q10 [Concomitant]
     Active Substance: DIETARY SUPPLEMENT\UBIDECARENONE
     Dates: start: 20220504
  6. LISINOPRIL [Concomitant]
     Active Substance: LISINOPRIL
     Dates: start: 20220504
  7. ASPIRIN [Concomitant]
     Active Substance: ASPIRIN
     Dates: start: 20220504
  8. DONEPEZIL [Concomitant]
     Active Substance: DONEPEZIL
     Dates: start: 20220125
  9. PAROXETINE [Concomitant]
     Active Substance: PAROXETINE
     Dates: start: 20220314
  10. SERTRALINE [Concomitant]
     Active Substance: SERTRALINE HYDROCHLORIDE
     Dates: start: 20211002
  11. INSULIN GLARGINE [Concomitant]
     Active Substance: INSULIN GLARGINE
     Dates: start: 20211008
  12. INSULIN ASPART [Concomitant]
     Active Substance: INSULIN ASPART
     Dates: start: 20210810
  13. fluticasone furoate-vilanterol [Concomitant]
  14. BACLOFEN [Concomitant]
     Active Substance: BACLOFEN
  15. METFORMIN [Concomitant]
     Active Substance: METFORMIN HYDROCHLORIDE
  16. OMEPRAZOLE [Concomitant]
     Active Substance: OMEPRAZOLE
  17. PREGABALIN [Concomitant]
     Active Substance: PREGABALIN

REACTIONS (1)
  - Ulcer haemorrhage [None]
